FAERS Safety Report 15579213 (Version 4)
Quarter: 2019Q3

REPORT INFORMATION
  Report Type: Spontaneous
  Country: US (occurrence: US)
  Receive Date: 20181102
  Receipt Date: 20190806
  Transmission Date: 20191004
  Serious: No
  Sender: FDA-Public Use
  Company Number: US-SA-2018SA300469

PATIENT
  Age: 64 Year
  Sex: Male

DRUGS (2)
  1. DUPIXENT [Suspect]
     Active Substance: DUPILUMAB
     Indication: DERMATITIS ATOPIC
  2. DUPIXENT [Suspect]
     Active Substance: DUPILUMAB
     Indication: DERMATITIS ALLERGIC
     Dosage: 300 MG, QOW
     Route: 058
     Dates: start: 20180717

REACTIONS (8)
  - Pigmentation disorder [Unknown]
  - Eye pruritus [Unknown]
  - Oral herpes [Unknown]
  - Mass [Unknown]
  - Skin exfoliation [Unknown]
  - Acne [Unknown]
  - Dry eye [Unknown]
  - Dry skin [Unknown]
